FAERS Safety Report 6417926-X (Version None)
Quarter: 2009Q4

REPORT INFORMATION
  Report Type: 
  Country: None (occurrence: None)
  Receive Date: 20091028
  Receipt Date: 20091019
  Transmission Date: 20100525
  Serious: Yes (Other)
  Sender: FDA-Public Use
  Company Number: B0599996A

PATIENT
  Age: 82 Year
  Sex: Male
  Weight: 75 kg

DRUGS (1)
  1. AUGMENTIN XR [Suspect]
     Indication: ABSCESS NECK
     Route: 048
     Dates: start: 20090304, end: 20090314

REACTIONS (4)
  - ACHOLIA [None]
  - CHOLESTASIS [None]
  - JAUNDICE [None]
  - LIVER FUNCTION TEST ABNORMAL [None]
